FAERS Safety Report 10314729 (Version 1)
Quarter: 2014Q3

REPORT INFORMATION
  Report Type: Spontaneous
  Country: US (occurrence: None)
  Receive Date: 20140717
  Receipt Date: 20140717
  Transmission Date: 20150326
  Serious: Yes (Other)
  Sender: FDA-Public Use
  Company Number: SP08048

PATIENT
  Age: 88 Year
  Sex: Male

DRUGS (1)
  1. XIFAXAN [Suspect]
     Active Substance: RIFAXIMIN
     Indication: HEPATIC ENCEPHALOPATHY
     Dosage: 1100 MG ( 550 MG, 2 IN 1 D), ORAL
     Route: 048
     Dates: start: 201402

REACTIONS (5)
  - Convulsion [None]
  - Tremor [None]
  - Disease progression [None]
  - CSF volume increased [None]
  - Syncope [None]

NARRATIVE: CASE EVENT DATE: 201402
